FAERS Safety Report 14621855 (Version 1)
Quarter: 2018Q1

REPORT INFORMATION
  Report Type: Spontaneous
  Country: BR (occurrence: BR)
  Receive Date: 20180310
  Receipt Date: 20180310
  Transmission Date: 20180509
  Serious: Yes (Other)
  Sender: FDA-Public Use
  Company Number: BR-TORRENT-00004184

PATIENT
  Age: 30 Year
  Sex: Female
  Weight: 80 kg

DRUGS (6)
  1. FLUOXETINE HYDROCHLORIDE. [Suspect]
     Active Substance: FLUOXETINE HYDROCHLORIDE
     Indication: PANIC DISORDER
     Dosage: DAILY IN THE MORNING
  2. RIVOTRIL [Concomitant]
     Active Substance: CLONAZEPAM
     Indication: INSOMNIA
     Route: 048
  3. AMITRIPTYLINE HYDROCHLORIDE. [Concomitant]
     Active Substance: AMITRIPTYLINE HYDROCHLORIDE
     Indication: INSOMNIA
     Dosage: EVERY NIGHT
     Route: 048
     Dates: start: 201712
  4. VENLIFT OD [Suspect]
     Active Substance: VENLAFAXINE HYDROCHLORIDE
     Indication: PANIC DISORDER
     Dates: start: 201706
  5. QUETIAPINE. [Concomitant]
     Active Substance: QUETIAPINE
     Indication: INSOMNIA
     Dosage: ONE TABLET AT NIGHT
     Route: 048
     Dates: start: 20170802, end: 201709
  6. SIBUTRAMINE HYDROCHLORIDE [Suspect]
     Active Substance: SIBUTRAMINE HYDROCHLORIDE
     Indication: PRODUCT USED FOR UNKNOWN INDICATION
     Dates: start: 201712

REACTIONS (12)
  - Ocular discomfort [Recovered/Resolved]
  - Headache [Unknown]
  - Drug ineffective [Unknown]
  - Agitation [Recovered/Resolved]
  - Drug withdrawal syndrome [Unknown]
  - Abdominal pain upper [Recovered/Resolved]
  - Mydriasis [Not Recovered/Not Resolved]
  - Fatigue [Recovered/Resolved]
  - Eye irritation [Unknown]
  - Diarrhoea [Recovered/Resolved]
  - Blindness transient [Recovered/Resolved]
  - Dizziness [Recovered/Resolved]

NARRATIVE: CASE EVENT DATE: 201708
